FAERS Safety Report 13150624 (Version 2)
Quarter: 2017Q1

REPORT INFORMATION
  Report Type: Spontaneous
  Country: US (occurrence: US)
  Receive Date: 20170125
  Receipt Date: 20170331
  Transmission Date: 20170428
  Serious: No
  Sender: FDA-Public Use
  Company Number: US-BIOMARINAP-US-2017-112501

PATIENT
  Sex: Male
  Weight: 81 kg

DRUGS (1)
  1. KUVAN [Suspect]
     Active Substance: SAPROPTERIN DIHYDROCHLORIDE
     Indication: PHENYLKETONURIA
     Dosage: 1600 MG, QD
     Route: 048
     Dates: start: 20111017, end: 20160301

REACTIONS (3)
  - Abdominal distension [Recovered/Resolved]
  - Flatulence [Unknown]
  - Abdominal pain upper [Unknown]
